FAERS Safety Report 5707517-8 (Version None)
Quarter: 2008Q2

REPORT INFORMATION
  Report Type: 
  Country: None (occurrence: None)
  Receive Date: 20080416
  Receipt Date: 20080407
  Transmission Date: 20081010
  Serious: Yes (Other)
  Sender: FDA-Public Use
  Company Number: BR-PFIZER INC-2008031521

PATIENT
  Sex: Female
  Weight: 86 kg

DRUGS (5)
  1. FRONTAL XR [Suspect]
     Indication: PANIC DISORDER
     Dosage: DAILY DOSE:.5MG
     Route: 048
  2. FRONTAL XR [Suspect]
     Indication: ANXIETY
  3. LAMOTRIGINE [Concomitant]
  4. CAPTOPRIL [Concomitant]
     Indication: HYPERTENSION
  5. MODURETIC 5-50 [Concomitant]
     Indication: HYPERTENSION

REACTIONS (4)
  - BLOOD PRESSURE INCREASED [None]
  - INSOMNIA [None]
  - NERVOUSNESS [None]
  - SOMNOLENCE [None]
